FAERS Safety Report 6086379-6 (Version None)
Quarter: 2009Q1

REPORT INFORMATION
  Report Type: 
  Country: None (occurrence: None)
  Receive Date: 20090220
  Receipt Date: 20090213
  Transmission Date: 20090719
  Serious: Yes (Other)
  Sender: FDA-Public Use
  Company Number: US-JNJCH-2009004317

PATIENT
  Sex: Female

DRUGS (1)
  1. ROGAINE [Suspect]
     Indication: ALOPECIA
     Dosage: TEXT:ONE-HALF CAPFUL TWICE
     Route: 061

REACTIONS (2)
  - TREMOR [None]
  - WRONG DRUG ADMINISTERED [None]
